FAERS Safety Report 6300521-0 (Version None)
Quarter: 2009Q3

REPORT INFORMATION
  Report Type: 
  Country: None (occurrence: None)
  Receive Date: 20090806
  Receipt Date: 20090216
  Transmission Date: 20100115
  Serious: No
  Sender: FDA-Public Use
  Company Number: US-ABBOTT-09P-163-0557811-00

PATIENT
  Sex: Male
  Weight: 90.8 kg

DRUGS (2)
  1. DEPAKOTE ER [Suspect]
     Indication: CONVULSION
     Dosage: 2000 MG  4 - 250 MILLIGRAMS IN THE MORNING AND 4 - 250 MILLIGRAMS IN THE EVENING
     Dates: start: 20080101
  2. DECLINED LONG LIST OF MEDS [Concomitant]
     Indication: DRUG USE FOR UNKNOWN INDICATION

REACTIONS (1)
  - TREMOR [None]
